FAERS Safety Report 25664378 (Version 1)
Quarter: 2025Q3

REPORT INFORMATION
  Report Type: Report from Study
  Country: US (occurrence: US)
  Receive Date: 20250811
  Receipt Date: 20250811
  Transmission Date: 20251020
  Serious: Yes (Other)
  Sender: ALEXION PHARMACEUTICALS
  Company Number: US-AstraZeneca-CH-00926322A

PATIENT
  Age: 77 Year
  Sex: Female

DRUGS (1)
  1. CALQUENCE [Suspect]
     Active Substance: ACALABRUTINIB
     Indication: Mantle cell lymphoma
     Dosage: 100 MILLIGRAM, BID
     Dates: start: 20250619

REACTIONS (2)
  - Post procedural haemorrhage [Recovering/Resolving]
  - Excessive granulation tissue [Recovering/Resolving]

NARRATIVE: CASE EVENT DATE: 20250806
